FAERS Safety Report 4596230-9 (Version None)
Quarter: 2005Q1

REPORT INFORMATION
  Report Type: 
  Country: None (occurrence: None)
  Receive Date: 20050225
  Receipt Date: 20050216
  Transmission Date: 20050727
  Serious: No
  Sender: FDA-Public Use
  Company Number: 2005UW02647

PATIENT

DRUGS (1)
  1. SEROQUEL [Suspect]
     Indication: PARKINSON'S DISEASE

REACTIONS (1)
  - HEPATIC FAILURE [None]
